FAERS Safety Report 8277034-2 (Version None)
Quarter: 2012Q2

REPORT INFORMATION
  Report Type: 
  Country: None (occurrence: None)
  Receive Date: 20120412
  Receipt Date: 20120403
  Transmission Date: 20120825
  Serious: Yes (Other)
  Sender: FDA-Public Use
  Company Number: FR-ASTRAZENECA-2012SE22753

PATIENT
  Sex: Male

DRUGS (6)
  1. NEXIUM [Suspect]
     Indication: GASTRITIS
     Route: 048
     Dates: start: 20120124, end: 20120204
  2. PEFLACINE [Suspect]
     Indication: OSTEITIS
     Route: 048
     Dates: start: 20120124, end: 20120127
  3. CLINDAMYCIN HCL [Concomitant]
     Indication: OSTEITIS
     Route: 048
     Dates: start: 20120127, end: 20120204
  4. GENTAMICIN [Suspect]
     Indication: OSTEITIS
     Route: 042
     Dates: start: 20120127, end: 20120204
  5. AUGMENTIN '125' [Suspect]
     Indication: OSTEITIS
     Route: 048
     Dates: start: 20120124, end: 20120127
  6. PENICILLIN [Concomitant]

REACTIONS (4)
  - ENANTHEMA [None]
  - PRURITUS [None]
  - DYSPHAGIA [None]
  - RASH GENERALISED [None]
